FAERS Safety Report 9169233 (Version 3)
Quarter: 2015Q2

REPORT INFORMATION
  Report Type: Report from Study
  Country: FR (occurrence: FR)
  Receive Date: 20130318
  Receipt Date: 20150420
  Transmission Date: 20150821
  Serious: Yes (Hospitalization, Other)
  Sender: FDA-Public Use
  Company Number: FR-ROCHE-1199829

PATIENT
  Age: 64 Year
  Sex: Female
  Weight: 68 kg

DRUGS (35)
  1. TARDYFERON (FRANCE) [Concomitant]
     Route: 065
     Dates: start: 20121206
  2. TOCILIZUMAB [Suspect]
     Active Substance: TOCILIZUMAB
     Route: 041
     Dates: start: 20110424
  3. MOPRAL [Concomitant]
     Active Substance: OMEPRAZOLE SODIUM
     Route: 065
     Dates: start: 20110701
  4. ATENOLOL. [Concomitant]
     Active Substance: ATENOLOL
     Route: 065
     Dates: start: 20110701
  5. ATENOLOL. [Concomitant]
     Active Substance: ATENOLOL
     Route: 065
     Dates: start: 20130613
  6. GLUCOPHAGE [Concomitant]
     Active Substance: METFORMIN HYDROCHLORIDE
     Route: 065
     Dates: start: 20121206
  7. TENORMIN [Concomitant]
     Active Substance: ATENOLOL
     Route: 065
  8. DANOL [Concomitant]
     Route: 065
  9. GLUCOPHAGE [Concomitant]
     Active Substance: METFORMIN HYDROCHLORIDE
     Route: 065
     Dates: start: 20110701
  10. GLUCOPHAGE [Concomitant]
     Active Substance: METFORMIN HYDROCHLORIDE
     Route: 065
     Dates: start: 20120109
  11. AMLOR [Concomitant]
     Active Substance: AMLODIPINE BESYLATE
     Route: 065
     Dates: start: 20120109
  12. HEMI-DAONIL [Concomitant]
     Active Substance: GLYBURIDE
     Dosage: DOSE- 1/2 DF
     Route: 065
     Dates: start: 20130613
  13. TOCILIZUMAB [Suspect]
     Active Substance: TOCILIZUMAB
     Indication: RHEUMATOID ARTHRITIS
     Route: 041
     Dates: start: 20110121, end: 20110530
  14. TOCILIZUMAB [Suspect]
     Active Substance: TOCILIZUMAB
     Route: 041
     Dates: start: 20110530, end: 20110701
  15. MOPRAL [Concomitant]
     Active Substance: OMEPRAZOLE SODIUM
     Route: 065
     Dates: start: 20121206
  16. AMLOR [Concomitant]
     Active Substance: AMLODIPINE BESYLATE
     Route: 065
     Dates: start: 20121206
  17. BIPROLOL [Concomitant]
  18. HEMI-DAONIL [Concomitant]
     Active Substance: GLYBURIDE
     Route: 065
     Dates: start: 20110701
  19. EUPANTOL [Concomitant]
     Active Substance: PANTOPRAZOLE SODIUM
     Route: 065
  20. GLUCOPHAGE [Concomitant]
     Active Substance: METFORMIN HYDROCHLORIDE
     Route: 065
     Dates: start: 20130613
  21. TOCILIZUMAB [Suspect]
     Active Substance: TOCILIZUMAB
     Route: 041
     Dates: start: 20110323
  22. AMLOR [Concomitant]
     Active Substance: AMLODIPINE BESYLATE
     Route: 065
     Dates: start: 20110701
  23. AMLOR [Concomitant]
     Active Substance: AMLODIPINE BESYLATE
     Route: 065
     Dates: start: 20130613
  24. LYSANXIA [Concomitant]
     Active Substance: PRAZEPAM
     Dosage: DOSE- 1/2 DF
     Route: 065
     Dates: start: 20130613
  25. TOCILIZUMAB [Suspect]
     Active Substance: TOCILIZUMAB
     Route: 041
     Dates: start: 20110223
  26. RITUXIMAB [Suspect]
     Active Substance: RITUXIMAB
     Indication: RHEUMATOID ARTHRITIS
     Route: 065
  27. MOPRAL [Concomitant]
     Active Substance: OMEPRAZOLE SODIUM
     Route: 065
     Dates: start: 20120109
  28. MOPRAL [Concomitant]
     Active Substance: OMEPRAZOLE SODIUM
     Route: 065
     Dates: start: 20130613
  29. LYSANXIA [Concomitant]
     Active Substance: PRAZEPAM
     Dosage: DOSE- 1/2 DF
     Route: 065
     Dates: start: 20110701
  30. ATENOLOL. [Concomitant]
     Active Substance: ATENOLOL
     Route: 065
     Dates: start: 20120109
  31. ATENOLOL. [Concomitant]
     Active Substance: ATENOLOL
     Route: 065
     Dates: start: 20121206
  32. CORTANCYL [Concomitant]
     Active Substance: PREDNISONE
     Route: 065
  33. METFORMIN [Concomitant]
     Active Substance: METFORMIN HYDROCHLORIDE
     Route: 065
  34. HEMI-DAONIL [Concomitant]
     Active Substance: GLYBURIDE
     Dosage: DOSE- 1/2 DF
     Route: 065
     Dates: start: 20120109
  35. BI-PROFENID [Concomitant]
     Active Substance: KETOPROFEN
     Route: 065

REACTIONS (8)
  - Pyrexia [Recovered/Resolved]
  - Anaemia [Recovered/Resolved]
  - Leukopenia [Recovered/Resolved]
  - Rheumatoid arthritis [Recovered/Resolved]
  - Eye pain [Recovered/Resolved]
  - Epistaxis [Recovered/Resolved]
  - Hiatus hernia [Recovered/Resolved]
  - Hypertension [Recovered/Resolved]

NARRATIVE: CASE EVENT DATE: 20110324
